FAERS Safety Report 13244893 (Version 2)
Quarter: 2017Q1

REPORT INFORMATION
  Report Type: Report from Study
  Country: FR (occurrence: FR)
  Receive Date: 20170216
  Receipt Date: 20170224
  Transmission Date: 20170428
  Serious: Yes (Death, Hospitalization, Other)
  Sender: FDA-Public Use
  Company Number: FR-BRISTOL-MYERS SQUIBB COMPANY-BMS-2017-013029

PATIENT
  Age: 55 Year
  Sex: Male
  Weight: 60 kg

DRUGS (3)
  1. ENTECAVIR. [Suspect]
     Active Substance: ENTECAVIR
     Indication: HEPATITIS B VIRUS TEST
     Dosage: 0.5 MG, QD
     Route: 065
     Dates: start: 20121207, end: 20150917
  2. STILNOX [Suspect]
     Active Substance: ZOLPIDEM TARTRATE
     Indication: SLEEP DISORDER
     Dosage: 10 MG, QD
     Route: 065
     Dates: end: 20150910
  3. PANTOPRAZOLE [Suspect]
     Active Substance: PANTOPRAZOLE SODIUM
     Indication: GASTROOESOPHAGEAL REFLUX DISEASE
     Dosage: 40 MG, QD
     Route: 065
     Dates: end: 20150910

REACTIONS (16)
  - Pyrexia [Unknown]
  - Varices oesophageal [Unknown]
  - Death [Fatal]
  - Hepatic cirrhosis [Unknown]
  - Ascites [Unknown]
  - Acute kidney injury [Unknown]
  - Peritonitis [Unknown]
  - Jaundice [Unknown]
  - Hypotension [Unknown]
  - Hepatic encephalopathy [Unknown]
  - Haemoglobin decreased [Unknown]
  - Transfusion [Unknown]
  - General physical health deterioration [Unknown]
  - Therapeutic embolisation [Unknown]
  - Enterococcal infection [Unknown]
  - Hepatocellular carcinoma [Unknown]

NARRATIVE: CASE EVENT DATE: 20150812
